FAERS Safety Report 9044912 (Version 2)
Quarter: 2013Q3

REPORT INFORMATION
  Report Type: Report from Study
  Country: JP (occurrence: JP)
  Receive Date: 20130130
  Receipt Date: 20130917
  Transmission Date: 20140515
  Serious: Yes (Other)
  Sender: FDA-Public Use
  Company Number: JP-GLAXOSMITHKLINE-B0860664A

PATIENT
  Age: 20 Year
  Sex: Male
  Weight: 51 kg

DRUGS (18)
  1. ARRANON [Suspect]
     Indication: T-CELL TYPE ACUTE LEUKAEMIA
     Dosage: 1500MGM2 PER DAY
     Route: 042
     Dates: start: 20110104, end: 20110108
  2. ARRANON [Suspect]
     Indication: T-CELL TYPE ACUTE LEUKAEMIA
     Dosage: 1500MGM2 PER DAY
     Route: 042
     Dates: start: 20110429, end: 20110503
  3. VEPESID [Concomitant]
     Indication: NEOPLASM MALIGNANT
     Route: 042
     Dates: start: 20110129, end: 20110130
  4. ENDOXAN [Concomitant]
     Indication: NEOPLASM MALIGNANT
     Dates: start: 20110131, end: 20110201
  5. CYLOCIDE [Concomitant]
     Indication: NEOPLASM MALIGNANT
     Route: 042
     Dates: start: 20110121, end: 20110121
  6. ZYLORIC [Concomitant]
     Indication: PROPHYLAXIS
     Route: 048
     Dates: start: 20101229, end: 20110105
  7. TAKEPRON [Concomitant]
     Indication: GASTRITIS PROPHYLAXIS
     Route: 048
     Dates: start: 20101105
  8. BAKTAR [Concomitant]
     Indication: INFECTION PROPHYLAXIS
     Route: 048
     Dates: start: 20101112
  9. MYCOSYST [Concomitant]
     Indication: INFECTION PROPHYLAXIS
     Route: 048
     Dates: start: 20101112
  10. URSO [Concomitant]
     Indication: PROPHYLAXIS
     Route: 048
     Dates: start: 20110129
  11. PROGRAF [Concomitant]
     Indication: PROPHYLAXIS
     Route: 048
     Dates: start: 20110310
  12. METLIGINE [Concomitant]
     Indication: ORTHOSTATIC HYPOTENSION
     Route: 048
     Dates: start: 20110411
  13. ACIROVEC [Concomitant]
     Indication: INFECTION PROPHYLAXIS
     Route: 048
     Dates: start: 20110129
  14. MAGMITT [Concomitant]
     Indication: HYPOMAGNESAEMIA
     Route: 048
     Dates: start: 20110325
  15. MALFA [Concomitant]
     Indication: HYPOMAGNESAEMIA
     Route: 048
     Dates: start: 20110319
  16. MEYLON [Concomitant]
     Indication: PROPHYLAXIS
     Route: 042
     Dates: start: 20110103, end: 20110105
  17. KYTRIL [Concomitant]
     Indication: PROPHYLAXIS OF NAUSEA AND VOMITING
     Route: 042
     Dates: start: 20110104, end: 20110108
  18. KYTRIL [Concomitant]
     Indication: PROPHYLAXIS OF NAUSEA AND VOMITING
     Route: 042
     Dates: start: 20110429, end: 20110503

REACTIONS (8)
  - Hepatic function abnormal [Recovered/Resolved]
  - Pyrexia [Recovered/Resolved]
  - Onycholysis [Not Recovered/Not Resolved]
  - White blood cell count decreased [Recovered/Resolved]
  - Graft versus host disease [Not Recovered/Not Resolved]
  - Graft versus host disease [Not Recovered/Not Resolved]
  - Orthostatic hypotension [Recovering/Resolving]
  - Hypomagnesaemia [Recovering/Resolving]
